FAERS Safety Report 7321427-4 (Version None)
Quarter: 2011Q1

REPORT INFORMATION
  Report Type: 
  Country: None (occurrence: None)
  Receive Date: 20110228
  Receipt Date: 20100608
  Transmission Date: 20110831
  Serious: No
  Sender: FDA-Public Use
  Company Number: US-PFIZER INC-2010073479

PATIENT
  Age: 24 Year
  Sex: Male
  Weight: 74.83 kg

DRUGS (2)
  1. GEODON [Suspect]
     Indication: BIPOLAR DISORDER
     Dosage: 60 MG, DAILY
     Route: 048
     Dates: start: 20090101
  2. ZOLOFT [Concomitant]
     Dosage: 100 MG, UNK

REACTIONS (1)
  - TONGUE DISORDER [None]
